FAERS Safety Report 9854871 (Version 1)
Quarter: 2013Q4

REPORT INFORMATION
  Report Type: Spontaneous
  Country: US (occurrence: None)
  Receive Date: 20131226
  Receipt Date: 20131226
  Transmission Date: 20140711
  Serious: No
  Sender: FDA-Public Use
  Company Number: PHEH2013US013438

PATIENT
  Age: 78 Year
  Sex: Female
  Weight: 70.3 kg

DRUGS (1)
  1. AFINITOR (RAD) UNKNOWN [Suspect]
     Indication: BREAST CANCER
     Route: 048
     Dates: start: 20120824, end: 20130619

REACTIONS (3)
  - Dyspnoea [None]
  - Oedema peripheral [None]
  - Pleural effusion [None]
